FAERS Safety Report 4752806-7 (Version None)
Quarter: 2005Q3

REPORT INFORMATION
  Report Type: 
  Country: None (occurrence: None)
  Receive Date: 20050823
  Receipt Date: 20050809
  Transmission Date: 20060218
  Serious: Yes (Hospitalization, Other)
  Sender: FDA-Public Use
  Company Number: 2005BI015058

PATIENT
  Age: 46 Year
  Sex: Female

DRUGS (2)
  1. AVONEX [Suspect]
     Indication: MULTIPLE SCLEROSIS
     Dosage: 30 UG; QW; IM
     Route: 030
     Dates: start: 20020220, end: 20050803
  2. CHEMOTHERAPY [Concomitant]

REACTIONS (3)
  - ATRIAL FIBRILLATION [None]
  - JAUNDICE [None]
  - THOUGHT BLOCKING [None]
